FAERS Safety Report 15331625 (Version 2)
Quarter: 2018Q4

REPORT INFORMATION
  Report Type: Report from Study
  Country: TN (occurrence: TN)
  Receive Date: 20180829
  Receipt Date: 20181102
  Transmission Date: 20190204
  Serious: Yes (Death)
  Sender: FDA-Public Use
  Company Number: TN-SA-2018SA239818

PATIENT
  Age: 85 Year
  Sex: Male

DRUGS (7)
  1. INSULATARD [INSULIN ISOPHANE PORCINE] [Concomitant]
     Dosage: UNK
  2. CLOPIDOGREL BISULFATE. [Suspect]
     Active Substance: CLOPIDOGREL BISULFATE
     Dosage: 75 MG, QD
     Route: 048
     Dates: start: 20171214, end: 20180615
  3. INSULIN [Concomitant]
     Active Substance: INSULIN NOS
     Dosage: UNK
  4. BONACOR [Concomitant]
     Dosage: UNK
  5. FAMODINE [Concomitant]
     Active Substance: FAMOTIDINE
     Dosage: UNK
  6. ATOR [Concomitant]
     Active Substance: ATORVASTATIN CALCIUM
     Dosage: UNK
  7. ASPEGIC [ACETYLSALICYLATE LYSINE] [Concomitant]
     Active Substance: ASPIRIN DL-LYSINE
     Dosage: UNK

REACTIONS (1)
  - Cardiac arrest [Fatal]

NARRATIVE: CASE EVENT DATE: 20180615
